FAERS Safety Report 14693562 (Version 5)
Quarter: 2018Q4

REPORT INFORMATION
  Report Type: Report from Study
  Country: JP (occurrence: JP)
  Receive Date: 20180329
  Receipt Date: 20181211
  Transmission Date: 20190204
  Serious: Yes (Hospitalization, Other)
  Sender: FDA-Public Use
  Company Number: JP-ACTELION-A-CH2018-169663

PATIENT
  Age: 38 Year
  Sex: Female
  Weight: 39.1 kg

DRUGS (16)
  1. TOCOPHERYL NICOTINATE [Concomitant]
     Active Substance: TOCOPHERYL NICOTINATE, D-.ALPHA.
  2. BERAPROST [Concomitant]
     Active Substance: BERAPROST
  3. FENTOS [Concomitant]
     Active Substance: FENTANYL
  4. BERASUS [Concomitant]
     Active Substance: BERAPROST SODIUM
  5. WARFARIN [Concomitant]
     Active Substance: WARFARIN
  6. NIFEDIPINE. [Concomitant]
     Active Substance: NIFEDIPINE
  7. TRACLEER [Suspect]
     Active Substance: BOSENTAN
     Indication: SCLERODERMA ASSOCIATED DIGITAL ULCER
     Dosage: 62.5 MG, QD
     Route: 048
     Dates: start: 20161201, end: 20180319
  8. ATELEC [Concomitant]
     Active Substance: CILNIDIPINE
  9. REBAMIPIDE [Concomitant]
     Active Substance: REBAMIPIDE
  10. ACECOL [Concomitant]
     Active Substance: TEMOCAPRIL HYDROCHLORIDE
  11. ANPLAG [Concomitant]
     Active Substance: SARPOGRELATE
  12. TAKECAB [Concomitant]
     Active Substance: VONOPRAZAN FUMURATE
  13. CELECOX [Concomitant]
     Active Substance: CELECOXIB
  14. LANSOPRAZOLE. [Concomitant]
     Active Substance: LANSOPRAZOLE
  15. PREDNISOLONE. [Concomitant]
     Active Substance: PREDNISOLONE
  16. DIART [Concomitant]
     Active Substance: AZOSEMIDE

REACTIONS (5)
  - Exposure during pregnancy [Unknown]
  - Caesarean section [Unknown]
  - Low birth weight baby [Recovered/Resolved]
  - Premature separation of placenta [Recovered/Resolved]
  - Premature labour [Recovered/Resolved]

NARRATIVE: CASE EVENT DATE: 20180309
